FAERS Safety Report 4643481-0 (Version None)
Quarter: 2005Q2

REPORT INFORMATION
  Report Type: 
  Country: None (occurrence: None)
  Receive Date: 20050325
  Receipt Date: 20041216
  Transmission Date: 20051028
  Serious: No
  Sender: FDA-Public Use
  Company Number: IND-AE-04-SAN-025

PATIENT
  Age: 72 Year
  Sex: Female
  Weight: 56.246 kg

DRUGS (2)
  1. SANCTURA [Suspect]
     Indication: HYPERTONIC BLADDER
     Dosage: 20MG-BID-ORAL
     Route: 048
     Dates: start: 20041206, end: 20041210
  2. LEVOBUNOLOL [Concomitant]

REACTIONS (4)
  - DISTURBANCE IN ATTENTION [None]
  - DRY MOUTH [None]
  - FLUID RETENTION [None]
  - WEIGHT INCREASED [None]
